FAERS Safety Report 23717263 (Version 1)
Quarter: 2024Q2

REPORT INFORMATION
  Report Type: Spontaneous
  Country: US (occurrence: US)
  Receive Date: 20240408
  Receipt Date: 20240408
  Transmission Date: 20240716
  Serious: No
  Sender: FDA-Public Use
  Company Number: US-SANOFI-01996932

PATIENT
  Sex: Male

DRUGS (1)
  1. DUPIXENT [Suspect]
     Active Substance: DUPILUMAB
     Indication: Dermatitis atopic
     Dosage: UNK
     Dates: end: 20240212

REACTIONS (5)
  - Peripheral swelling [Unknown]
  - Erythema [Unknown]
  - Oral herpes [Unknown]
  - Blepharitis [Unknown]
  - Conjunctivitis [Unknown]
